FAERS Safety Report 5520247-0 (Version None)
Quarter: 2007Q4

REPORT INFORMATION
  Report Type: 
  Country: None (occurrence: None)
  Receive Date: 20071117
  Receipt Date: 20071112
  Transmission Date: 20080405
  Serious: Yes (Other)
  Sender: FDA-Public Use
  Company Number: PHNU2007DE03763

PATIENT
  Sex: Male

DRUGS (1)
  1. DESFERAL [Suspect]
     Route: 058

REACTIONS (1)
  - GASTROENTERITIS [None]
